FAERS Safety Report 4869451-5 (Version None)
Quarter: 2005Q4

REPORT INFORMATION
  Report Type: 
  Country: None (occurrence: None)
  Receive Date: 20051230
  Receipt Date: 20050125
  Transmission Date: 20060501
  Serious: Yes (Hospitalization)
  Sender: FDA-Public Use
  Company Number: US-MERCK-0501USA04125

PATIENT
  Age: 24 Year
  Sex: Male
  Weight: 85 kg

DRUGS (6)
  1. VIOXX [Suspect]
     Indication: BACK PAIN
     Route: 048
     Dates: start: 20011109, end: 20011115
  2. VIOXX [Suspect]
     Route: 048
     Dates: start: 20011202, end: 20020505
  3. VIOXX [Suspect]
     Indication: INTERVERTEBRAL DISC PROTRUSION
     Route: 048
     Dates: start: 20011109, end: 20011115
  4. VIOXX [Suspect]
     Route: 048
     Dates: start: 20011202, end: 20020505
  5. VIOXX [Suspect]
     Route: 065
  6. VIOXX [Suspect]
     Route: 065

REACTIONS (8)
  - CHEST PAIN [None]
  - DEEP VEIN THROMBOSIS [None]
  - EMOTIONAL DISTRESS [None]
  - INTERVERTEBRAL DISC PROTRUSION [None]
  - PHLEBITIS [None]
  - POST THROMBOTIC SYNDROME [None]
  - VENOUS INSUFFICIENCY [None]
  - VENOUS THROMBOSIS LIMB [None]
